FAERS Safety Report 23771813 (Version 1)
Quarter: 2024Q2

REPORT INFORMATION
  Report Type: Spontaneous
  Country: IT (occurrence: IT)
  Receive Date: 20240423
  Receipt Date: 20240423
  Transmission Date: 20240715
  Serious: Yes (Other)
  Sender: FDA-Public Use
  Company Number: None

PATIENT
  Age: 58 Year
  Sex: Female

DRUGS (2)
  1. KEYTRUDA [Suspect]
     Active Substance: PEMBROLIZUMAB
     Indication: Renal cancer
     Dosage: 200 MILLIGRAM, UNK
     Route: 042
     Dates: start: 20240226, end: 20240314
  2. INLYTA [Suspect]
     Active Substance: AXITINIB
     Indication: Renal cancer
     Dosage: 5 MILLIGRAM, UNK
     Route: 048

REACTIONS (1)
  - Blood thyroid stimulating hormone increased [Recovering/Resolving]

NARRATIVE: CASE EVENT DATE: 20240314
